FAERS Safety Report 5049979-8 (Version None)
Quarter: 2006Q2

REPORT INFORMATION
  Report Type: 
  Country: None (occurrence: None)
  Receive Date: 20060614
  Receipt Date: 20060421
  Transmission Date: 20061013
  Serious: Yes (Other)
  Sender: FDA-Public Use
  Company Number: 445562

PATIENT
  Age: 37 Year
  Sex: Female

DRUGS (3)
  1. BONIVA [Suspect]
     Indication: OSTEOPOROSIS
  2. SEASONALE (ETHINYL ESTRADIOL/LEVONORGESTREL) [Concomitant]
  3. ANTIBIOTIC (ANTIBIOTIC NOS) [Concomitant]

REACTIONS (1)
  - FUNGAL INFECTION [None]
